FAERS Safety Report 6175399-9 (Version None)
Quarter: 2009Q2

REPORT INFORMATION
  Report Type: 
  Country: None (occurrence: None)
  Receive Date: 20090429
  Receipt Date: 20090422
  Transmission Date: 20091009
  Serious: Yes (Other)
  Sender: FDA-Public Use
  Company Number: CHPA2009US06711

PATIENT
  Age: 81 Year
  Sex: Female

DRUGS (4)
  1. VOLTAREN [Suspect]
     Indication: COSTOCHONDRITIS
     Dosage: 2 G, ONCE/SINGLE, TOPICAL
     Route: 061
     Dates: start: 20090310, end: 20090310
  2. GLUCOVANCE [Concomitant]
  3. DARVOCET-N 100 [Concomitant]
  4. BENADRYL ^PFIZER WARNER-LAMBERT^ (DIPHENHYDRAMINE HYDROCHLORIDE) [Concomitant]

REACTIONS (5)
  - ANAPHYLACTIC REACTION [None]
  - DRUG ADMINISTERED AT INAPPROPRIATE SITE [None]
  - HAEMORRHAGE [None]
  - HYPERSENSITIVITY [None]
  - WRONG TECHNIQUE IN DRUG USAGE PROCESS [None]
